FAERS Safety Report 9834600 (Version 1)
Quarter: 2014Q1

REPORT INFORMATION
  Report Type: Spontaneous
  Country: GB (occurrence: GB)
  Receive Date: 20140122
  Receipt Date: 20140122
  Transmission Date: 20141002
  Serious: Yes (Other)
  Sender: FDA-Public Use
  Company Number: PHHY2014GB003394

PATIENT
  Sex: Female
  Weight: 2.35 kg

DRUGS (2)
  1. CICLOSPORIN [Suspect]
     Dosage: MATERNAL DOSE 3 MG/KG, DAILY
     Route: 064
  2. PREDNISOLONE [Suspect]
     Dosage: UNK
     Route: 064

REACTIONS (2)
  - Low birth weight baby [Unknown]
  - Foetal exposure during pregnancy [Unknown]
